FAERS Safety Report 4751729-7 (Version None)
Quarter: 2005Q3

REPORT INFORMATION
  Report Type: 
  Country: None (occurrence: None)
  Receive Date: 20050824
  Receipt Date: 20050823
  Transmission Date: 20060218
  Serious: Yes (Hospitalization)
  Sender: FDA-Public Use
  Company Number: US-SANOFI-SYNTHELABO-F01200501628

PATIENT
  Sex: Female

DRUGS (14)
  1. OXALIPLATIN [Suspect]
     Indication: COLORECTAL CANCER METASTATIC
     Route: 042
  2. FLUOROURACIL [Suspect]
     Dosage: 612 MG BOLUS + 918 MG CONTINUOUS INFUSION ON DAYS 1 AND 2 Q2W
     Route: 042
  3. LEUCOVORIN [Suspect]
     Route: 042
  4. MEGACE [Concomitant]
     Dosage: UNK
     Route: 065
     Dates: start: 20040622
  5. DURAGESIC-100 [Concomitant]
     Dosage: UNK
     Route: 065
     Dates: start: 20040316
  6. ARANESP [Concomitant]
     Dosage: UNK
     Route: 065
     Dates: start: 20040126
  7. ATROVENT [Concomitant]
     Dosage: UNK
     Route: 065
     Dates: start: 20040202
  8. CONCOMITANT DRUG [Concomitant]
     Dosage: UNK
     Route: 065
     Dates: start: 20040202
  9. PROTONIX [Concomitant]
     Dosage: UNK
     Route: 065
     Dates: start: 20031216
  10. CONCOMITANT DRUG [Concomitant]
     Dosage: UNK
     Route: 065
     Dates: start: 20041216
  11. IRON [Concomitant]
     Dosage: UNK
     Route: 065
     Dates: start: 20040209
  12. POTASSIUM CHLORIDE [Concomitant]
     Dosage: UNK
     Route: 065
     Dates: start: 20041216
  13. LEVOXYL [Concomitant]
     Dosage: UNK
     Route: 065
     Dates: start: 19850615
  14. XANAX [Concomitant]
     Dosage: UNK
     Route: 065
     Dates: start: 20040209

REACTIONS (1)
  - HYPOVOLAEMIA [None]
